FAERS Safety Report 4831427-1 (Version None)
Quarter: 2005Q4

REPORT INFORMATION
  Report Type: 
  Country: None (occurrence: None)
  Receive Date: 20051116
  Receipt Date: 20051116
  Transmission Date: 20060501
  Serious: Yes (Life-Threatening, Hospitalization)
  Sender: FDA-Public Use
  Company Number: None

PATIENT
  Sex: Female
  Weight: 56.6996 kg

DRUGS (1)
  1. VICKS FORMULA 44 [Suspect]
     Indication: NASOPHARYNGITIS
     Dosage: CAPFUL NIGHTLY PO
     Route: 048

REACTIONS (7)
  - DIZZINESS [None]
  - FACIAL BONES FRACTURE [None]
  - FALL [None]
  - INJURY [None]
  - LOSS OF CONSCIOUSNESS [None]
  - MUSCLE INJURY [None]
  - SKIN LACERATION [None]
